FAERS Safety Report 4799922-1 (Version None)
Quarter: 2005Q4

REPORT INFORMATION
  Report Type: 
  Country: None (occurrence: None)
  Receive Date: 20051017
  Receipt Date: 20050809
  Transmission Date: 20060501
  Serious: Yes (Life-Threatening, Hospitalization)
  Sender: FDA-Public Use
  Company Number: JP-BOEHRINGER INGELHEIM PHARMACEUTICALS, INC.-2005-BP-14699NB

PATIENT
  Sex: Female

DRUGS (11)
  1. PRAMIPEXOLE DIHYDROCHLORIDE [Suspect]
     Indication: PARKINSON'S DISEASE
     Route: 048
     Dates: start: 20050705, end: 20050801
  2. ARTANE [Concomitant]
     Indication: PARKINSON'S DISEASE
     Route: 048
  3. SYMMETREL [Concomitant]
     Indication: PARKINSON'S DISEASE
     Route: 048
  4. PARLODEL [Concomitant]
     Indication: PARKINSON'S DISEASE
     Route: 048
  5. MADOPAR [Concomitant]
     Indication: PARKINSON'S DISEASE
     Route: 048
  6. ASPARA K [Concomitant]
     Indication: HYPOKALAEMIA
     Route: 048
  7. DEPAS [Concomitant]
     Route: 048
  8. PANALDINE [Concomitant]
     Indication: THROMBOSIS PROPHYLAXIS
     Route: 048
  9. RHYTHMY [Concomitant]
     Indication: INSOMNIA
     Route: 048
  10. HALCION [Concomitant]
     Indication: INSOMNIA
     Route: 048
  11. ALDACTONE [Concomitant]
     Indication: HYPERTENSION
     Route: 048

REACTIONS (3)
  - DISSEMINATED INTRAVASCULAR COAGULATION [None]
  - NEUROLEPTIC MALIGNANT SYNDROME [None]
  - PNEUMONIA [None]
